FAERS Safety Report 4472040-8 (Version None)
Quarter: 2004Q3

REPORT INFORMATION
  Report Type: 
  Country: None (occurrence: None)
  Receive Date: 20040909
  Receipt Date: 20040604
  Transmission Date: 20050211
  Serious: Yes (Hospitalization)
  Sender: FDA-Public Use
  Company Number: P03200400060

PATIENT
  Age: 35 Year
  Sex: Male
  Weight: 87.3 kg

DRUGS (9)
  1. OXALIPLATIN - SOLUTION - UNIT DOSE : UNKNOWN [Suspect]
     Indication: COLORECTAL CANCER METASTATIC
     Dates: start: 20040212, end: 20040212
  2. PTK787/ZK 222584 VS. PLACEBO [Suspect]
     Indication: COLORECTAL CANCER METASTATIC
     Dosage: ORAL
     Route: 048
     Dates: start: 20040212, end: 20040423
  3. FU-FLOUROURACIL [Suspect]
     Indication: COLORECTAL CANCER METASTATIC
     Dates: start: 20040212
  4. LEUCOVORIN [Suspect]
     Indication: COLORECTAL CANCER METASTATIC
     Dates: start: 20040212
  5. DEXAMETHASONE [Concomitant]
  6. DRONABINOL [Concomitant]
  7. PROCHLORPERAZINE [Concomitant]
  8. LOPERAMIDE HYDROCHLORIDE [Concomitant]
  9. MORPHINE [Concomitant]

REACTIONS (3)
  - FEBRILE NEUTROPENIA [None]
  - HICCUPS [None]
  - ORTHOSTATIC HYPOTENSION [None]
